FAERS Safety Report 10675127 (Version 1)
Quarter: 2014Q4

REPORT INFORMATION
  Report Type: Spontaneous
  Country: US (occurrence: US)
  Receive Date: 20141224
  Receipt Date: 20141224
  Transmission Date: 20150529
  Serious: No
  Sender: FDA-Public Use
  Company Number: US-GLAXOSMITHKLINE-US2014GSK041789

PATIENT
  Sex: Female
  Weight: 80.73 kg

DRUGS (1)
  1. TYKERB [Suspect]
     Active Substance: LAPATINIB DITOSYLATE
     Indication: ILL-DEFINED DISORDER
     Dosage: 1250 MG, QD
     Route: 048
     Dates: start: 20131017

REACTIONS (2)
  - Drug ineffective [Unknown]
  - Neoplasm progression [Unknown]
